FAERS Safety Report 20223480 (Version 8)
Quarter: 2025Q3

REPORT INFORMATION
  Report Type: Spontaneous
  Country: EU (occurrence: EU)
  Receive Date: 20211223
  Receipt Date: 20250718
  Transmission Date: 20251021
  Serious: Yes (Hospitalization, Other)
  Sender: MYLAN
  Company Number: EU-SA-2021SA375358

PATIENT
  Age: 17 Year
  Sex: Female

DRUGS (126)
  1. IMATINIB [Suspect]
     Active Substance: IMATINIB
     Indication: Philadelphia positive acute lymphocytic leukaemia
  2. IMATINIB [Suspect]
     Active Substance: IMATINIB
     Indication: Acute lymphocytic leukaemia
     Route: 065
  3. IMATINIB [Suspect]
     Active Substance: IMATINIB
     Indication: Graft versus host disease
     Route: 065
  4. IMATINIB [Suspect]
     Active Substance: IMATINIB
     Indication: Philadelphia chromosome positive
  5. IMATINIB [Suspect]
     Active Substance: IMATINIB
     Indication: Immunosuppression
  6. IMATINIB [Suspect]
     Active Substance: IMATINIB
     Indication: Acute lymphocytic leukaemia
  7. IMATINIB [Suspect]
     Active Substance: IMATINIB
     Indication: Epstein-Barr virus infection reactivation
  8. TACROLIMUS [Suspect]
     Active Substance: TACROLIMUS
     Indication: Prophylaxis against transplant rejection
  9. TACROLIMUS [Suspect]
     Active Substance: TACROLIMUS
     Indication: Immunosuppression
     Route: 065
  10. TACROLIMUS [Suspect]
     Active Substance: TACROLIMUS
     Indication: Acute lymphocytic leukaemia
     Route: 065
  11. TACROLIMUS [Suspect]
     Active Substance: TACROLIMUS
     Indication: Graft versus host disease
  12. TACROLIMUS [Suspect]
     Active Substance: TACROLIMUS
     Indication: Philadelphia chromosome positive
  13. TACROLIMUS [Suspect]
     Active Substance: TACROLIMUS
     Indication: Epstein-Barr virus infection reactivation
  14. FLUDARABINE [Suspect]
     Active Substance: FLUDARABINE PHOSPHATE
     Indication: Bone marrow conditioning regimen
     Dosage: 30 MILLIGRAM/SQ. METER, QD (30 MG/M2, QD)
  15. FLUDARABINE [Suspect]
     Active Substance: FLUDARABINE PHOSPHATE
     Indication: Prophylaxis against transplant rejection
     Dosage: 30 MILLIGRAM/SQ. METER, QD (30 MG/M2, QD)
     Route: 042
  16. FLUDARABINE [Suspect]
     Active Substance: FLUDARABINE PHOSPHATE
     Indication: Graft versus host disease
     Dosage: 30 MILLIGRAM/SQ. METER, QD (30 MG/M2, QD)
     Route: 042
  17. FLUDARABINE [Suspect]
     Active Substance: FLUDARABINE PHOSPHATE
     Indication: Epstein-Barr virus infection reactivation
     Dosage: 30 MILLIGRAM/SQ. METER, QD (30 MG/M2, QD)
  18. FLUDARABINE [Suspect]
     Active Substance: FLUDARABINE PHOSPHATE
     Indication: Acute lymphocytic leukaemia
  19. FLUDARABINE [Suspect]
     Active Substance: FLUDARABINE PHOSPHATE
     Indication: Immunosuppression
  20. FLUDARABINE [Suspect]
     Active Substance: FLUDARABINE PHOSPHATE
     Indication: Philadelphia chromosome positive
  21. GANCICLOVIR [Suspect]
     Active Substance: GANCICLOVIR
     Indication: Cytomegalovirus infection
     Dosage: 5 MILLIGRAM/KILOGRAM, QD
  22. GANCICLOVIR [Suspect]
     Active Substance: GANCICLOVIR
     Indication: Epstein-Barr virus infection
     Dosage: 5 MILLIGRAM/KILOGRAM, QD
  23. GANCICLOVIR [Suspect]
     Active Substance: GANCICLOVIR
     Indication: Cytomegalovirus infection reactivation
     Dosage: 5 MILLIGRAM/KILOGRAM, QD
     Route: 065
  24. GANCICLOVIR [Suspect]
     Active Substance: GANCICLOVIR
     Dosage: 5 MILLIGRAM/KILOGRAM, QD
     Route: 065
  25. GANCICLOVIR [Suspect]
     Active Substance: GANCICLOVIR
     Dosage: 10 MILLIGRAM/KILOGRAM, QD
  26. GANCICLOVIR [Suspect]
     Active Substance: GANCICLOVIR
     Dosage: 10 MILLIGRAM/KILOGRAM, QD
  27. GANCICLOVIR [Suspect]
     Active Substance: GANCICLOVIR
     Dosage: 10 MILLIGRAM/KILOGRAM, QD
     Route: 065
  28. GANCICLOVIR [Suspect]
     Active Substance: GANCICLOVIR
     Dosage: 10 MILLIGRAM/KILOGRAM, QD
     Route: 065
  29. TREOSULFAN [Suspect]
     Active Substance: TREOSULFAN
     Indication: Bone marrow conditioning regimen
     Dosage: 14 GRAM PER SQUARE METRE, QD (14 G/M2, QD)
  30. TREOSULFAN [Suspect]
     Active Substance: TREOSULFAN
     Indication: Prophylaxis against transplant rejection
     Dosage: 14 GRAM PER SQUARE METRE, QD (14 G/M2, QD)
     Route: 042
  31. TREOSULFAN [Suspect]
     Active Substance: TREOSULFAN
     Indication: Immunosuppression
     Dosage: 14 GRAM PER SQUARE METRE, QD (14 G/M2, QD)
     Route: 042
  32. TREOSULFAN [Suspect]
     Active Substance: TREOSULFAN
     Indication: Epstein-Barr virus infection reactivation
     Dosage: 14 GRAM PER SQUARE METRE, QD (14 G/M2, QD)
  33. TREOSULFAN [Suspect]
     Active Substance: TREOSULFAN
     Indication: Graft versus host disease
  34. TREOSULFAN [Suspect]
     Active Substance: TREOSULFAN
     Indication: Acute lymphocytic leukaemia
  35. TREOSULFAN [Suspect]
     Active Substance: TREOSULFAN
     Indication: Philadelphia chromosome positive
  36. CYCLOSPORINE [Suspect]
     Active Substance: CYCLOSPORINE
     Indication: Prophylaxis against graft versus host disease
  37. CYCLOSPORINE [Suspect]
     Active Substance: CYCLOSPORINE
     Indication: Epstein-Barr virus infection reactivation
     Route: 065
  38. CYCLOSPORINE [Suspect]
     Active Substance: CYCLOSPORINE
     Indication: Acute lymphocytic leukaemia
     Route: 065
  39. CYCLOSPORINE [Suspect]
     Active Substance: CYCLOSPORINE
     Indication: Graft versus host disease
  40. CYCLOSPORINE [Suspect]
     Active Substance: CYCLOSPORINE
     Indication: Philadelphia chromosome positive
  41. CYCLOSPORINE [Suspect]
     Active Substance: CYCLOSPORINE
     Indication: Immunosuppression
  42. THYMOGLOBULIN [Suspect]
     Active Substance: LAPINE T-LYMPHOCYTE IMMUNE GLOBULIN
     Indication: Lymphodepletion
  43. THYMOGLOBULIN [Suspect]
     Active Substance: LAPINE T-LYMPHOCYTE IMMUNE GLOBULIN
     Indication: Bone marrow conditioning regimen
     Route: 065
  44. THYMOGLOBULIN [Suspect]
     Active Substance: LAPINE T-LYMPHOCYTE IMMUNE GLOBULIN
     Indication: Prophylaxis against transplant rejection
     Route: 065
  45. THYMOGLOBULIN [Suspect]
     Active Substance: LAPINE T-LYMPHOCYTE IMMUNE GLOBULIN
     Indication: Epstein-Barr virus infection reactivation
  46. THYMOGLOBULIN [Suspect]
     Active Substance: LAPINE T-LYMPHOCYTE IMMUNE GLOBULIN
     Indication: Acute lymphocytic leukaemia
  47. THYMOGLOBULIN [Suspect]
     Active Substance: LAPINE T-LYMPHOCYTE IMMUNE GLOBULIN
     Indication: Philadelphia chromosome positive
  48. THYMOGLOBULIN [Suspect]
     Active Substance: LAPINE T-LYMPHOCYTE IMMUNE GLOBULIN
     Indication: Graft versus host disease
  49. THYMOGLOBULIN [Suspect]
     Active Substance: LAPINE T-LYMPHOCYTE IMMUNE GLOBULIN
     Indication: Immunosuppression
  50. RITUXIMAB [Suspect]
     Active Substance: RITUXIMAB
     Indication: Epstein-Barr virus infection reactivation
     Dosage: 375 MILLIGRAM/SQ. METER, QW
  51. RITUXIMAB [Suspect]
     Active Substance: RITUXIMAB
     Indication: Graft versus host disease
     Dosage: 375 MILLIGRAM/SQ. METER, QW
     Route: 042
  52. RITUXIMAB [Suspect]
     Active Substance: RITUXIMAB
     Indication: Philadelphia chromosome positive
     Dosage: 375 MILLIGRAM/SQ. METER, QW
     Route: 042
  53. RITUXIMAB [Suspect]
     Active Substance: RITUXIMAB
     Indication: Immunosuppression
     Dosage: 375 MILLIGRAM/SQ. METER, QW
  54. RITUXIMAB [Suspect]
     Active Substance: RITUXIMAB
     Indication: Acute lymphocytic leukaemia
  55. FLUCONAZOLE [Suspect]
     Active Substance: FLUCONAZOLE
     Indication: Infection prophylaxis
     Dosage: 8 MILLIGRAM/KILOGRAM, QD
  56. FLUCONAZOLE [Suspect]
     Active Substance: FLUCONAZOLE
     Dosage: 8 MILLIGRAM/KILOGRAM, QD
     Route: 065
  57. FLUCONAZOLE [Suspect]
     Active Substance: FLUCONAZOLE
     Dosage: 8 MILLIGRAM/KILOGRAM, QD
     Route: 065
  58. FLUCONAZOLE [Suspect]
     Active Substance: FLUCONAZOLE
     Dosage: 8 MILLIGRAM/KILOGRAM, QD
  59. PENICILLIN V [Suspect]
     Active Substance: PENICILLIN V
     Indication: Infection prophylaxis
  60. PENICILLIN V [Suspect]
     Active Substance: PENICILLIN V
     Route: 065
  61. PENICILLIN V [Suspect]
     Active Substance: PENICILLIN V
     Route: 065
  62. PENICILLIN V [Suspect]
     Active Substance: PENICILLIN V
  63. COTRIMOXAZOLE [Suspect]
     Active Substance: SULFAMETHOXAZOLE\TRIMETHOPRIM
     Indication: Infection prophylaxis
     Dosage: 60 MILLIGRAM/KILOGRAM, QD
  64. COTRIMOXAZOLE [Suspect]
     Active Substance: SULFAMETHOXAZOLE\TRIMETHOPRIM
     Indication: Cerebral toxoplasmosis
     Dosage: 60 MILLIGRAM/KILOGRAM, QD
  65. COTRIMOXAZOLE [Suspect]
     Active Substance: SULFAMETHOXAZOLE\TRIMETHOPRIM
     Dosage: 60 MILLIGRAM/KILOGRAM, QD
     Route: 065
  66. COTRIMOXAZOLE [Suspect]
     Active Substance: SULFAMETHOXAZOLE\TRIMETHOPRIM
     Dosage: 60 MILLIGRAM/KILOGRAM, QD
     Route: 065
  67. COTRIMOXAZOLE [Suspect]
     Active Substance: SULFAMETHOXAZOLE\TRIMETHOPRIM
     Dosage: 45 MILLIGRAM/KILOGRAM, QD (15 MG/KG, TID (DAY 28))
  68. COTRIMOXAZOLE [Suspect]
     Active Substance: SULFAMETHOXAZOLE\TRIMETHOPRIM
     Dosage: 45 MILLIGRAM/KILOGRAM, QD (15 MG/KG, TID (DAY 28))
  69. COTRIMOXAZOLE [Suspect]
     Active Substance: SULFAMETHOXAZOLE\TRIMETHOPRIM
     Dosage: 45 MILLIGRAM/KILOGRAM, QD (15 MG/KG, TID (DAY 28))
     Route: 065
  70. COTRIMOXAZOLE [Suspect]
     Active Substance: SULFAMETHOXAZOLE\TRIMETHOPRIM
     Dosage: 45 MILLIGRAM/KILOGRAM, QD (15 MG/KG, TID (DAY 28))
     Route: 065
  71. COTRIMOXAZOLE [Suspect]
     Active Substance: SULFAMETHOXAZOLE\TRIMETHOPRIM
     Dosage: 30 MILLIGRAM/KILOGRAM, QD
  72. COTRIMOXAZOLE [Suspect]
     Active Substance: SULFAMETHOXAZOLE\TRIMETHOPRIM
     Dosage: 30 MILLIGRAM/KILOGRAM, QD
     Route: 065
  73. COTRIMOXAZOLE [Suspect]
     Active Substance: SULFAMETHOXAZOLE\TRIMETHOPRIM
     Dosage: 30 MILLIGRAM/KILOGRAM, QD
  74. COTRIMOXAZOLE [Suspect]
     Active Substance: SULFAMETHOXAZOLE\TRIMETHOPRIM
     Dosage: 30 MILLIGRAM/KILOGRAM, QD
     Route: 065
  75. PENICILLIN V [Concomitant]
     Active Substance: PENICILLIN V
     Indication: Infection prophylaxis
     Dosage: (60000 UNITS/KG/DAY)
  76. PENICILLIN V [Concomitant]
     Active Substance: PENICILLIN V
     Dosage: (60000 UNITS/KG/DAY)
     Route: 065
  77. PENICILLIN V [Concomitant]
     Active Substance: PENICILLIN V
     Dosage: (60000 UNITS/KG/DAY)
     Route: 065
  78. PENICILLIN V [Concomitant]
     Active Substance: PENICILLIN V
     Dosage: (60000 UNITS/KG/DAY)
  79. COTRIMOXAZOLE [Concomitant]
     Active Substance: SULFAMETHOXAZOLE\TRIMETHOPRIM
     Indication: Cerebral toxoplasmosis
  80. COTRIMOXAZOLE [Concomitant]
     Active Substance: SULFAMETHOXAZOLE\TRIMETHOPRIM
     Indication: Infection prophylaxis
  81. COTRIMOXAZOLE [Concomitant]
     Active Substance: SULFAMETHOXAZOLE\TRIMETHOPRIM
     Route: 065
  82. COTRIMOXAZOLE [Concomitant]
     Active Substance: SULFAMETHOXAZOLE\TRIMETHOPRIM
     Route: 065
  83. COTRIMOXAZOLE [Concomitant]
     Active Substance: SULFAMETHOXAZOLE\TRIMETHOPRIM
  84. COTRIMOXAZOLE [Concomitant]
     Active Substance: SULFAMETHOXAZOLE\TRIMETHOPRIM
  85. COTRIMOXAZOLE [Concomitant]
     Active Substance: SULFAMETHOXAZOLE\TRIMETHOPRIM
     Route: 065
  86. COTRIMOXAZOLE [Concomitant]
     Active Substance: SULFAMETHOXAZOLE\TRIMETHOPRIM
     Route: 065
  87. COTRIMOXAZOLE [Concomitant]
     Active Substance: SULFAMETHOXAZOLE\TRIMETHOPRIM
     Dosage: 15 MILLIGRAM/KILOGRAM, QD ( THREE TIMES WEEKLY FROM DAY +28)
  88. COTRIMOXAZOLE [Concomitant]
     Active Substance: SULFAMETHOXAZOLE\TRIMETHOPRIM
     Dosage: 15 MILLIGRAM/KILOGRAM, QD ( THREE TIMES WEEKLY FROM DAY +28)
     Route: 065
  89. COTRIMOXAZOLE [Concomitant]
     Active Substance: SULFAMETHOXAZOLE\TRIMETHOPRIM
     Dosage: 15 MILLIGRAM/KILOGRAM, QD ( THREE TIMES WEEKLY FROM DAY +28)
  90. COTRIMOXAZOLE [Concomitant]
     Active Substance: SULFAMETHOXAZOLE\TRIMETHOPRIM
     Dosage: 15 MILLIGRAM/KILOGRAM, QD ( THREE TIMES WEEKLY FROM DAY +28)
     Route: 065
  91. FLUCONAZOLE [Concomitant]
     Active Substance: FLUCONAZOLE
     Indication: Infection prophylaxis
     Dosage: 8 MILLIGRAM/KILOGRAM, QD (8 MG/KG, QD)
  92. FLUCONAZOLE [Concomitant]
     Active Substance: FLUCONAZOLE
     Dosage: 8 MILLIGRAM/KILOGRAM, QD (8 MG/KG, QD)
     Route: 065
  93. FLUCONAZOLE [Concomitant]
     Active Substance: FLUCONAZOLE
     Dosage: 8 MILLIGRAM/KILOGRAM, QD (8 MG/KG, QD)
     Route: 065
  94. FLUCONAZOLE [Concomitant]
     Active Substance: FLUCONAZOLE
     Dosage: 8 MILLIGRAM/KILOGRAM, QD (8 MG/KG, QD)
  95. MEROPENEM [Concomitant]
     Active Substance: MEROPENEM
     Indication: Febrile neutropenia
  96. MEROPENEM [Concomitant]
     Active Substance: MEROPENEM
     Route: 065
  97. MEROPENEM [Concomitant]
     Active Substance: MEROPENEM
     Route: 065
  98. MEROPENEM [Concomitant]
     Active Substance: MEROPENEM
  99. POSACONAZOLE [Concomitant]
     Active Substance: POSACONAZOLE
     Indication: Febrile neutropenia
  100. POSACONAZOLE [Concomitant]
     Active Substance: POSACONAZOLE
     Route: 065
  101. POSACONAZOLE [Concomitant]
     Active Substance: POSACONAZOLE
     Route: 065
  102. POSACONAZOLE [Concomitant]
     Active Substance: POSACONAZOLE
  103. CLINDAMYCIN [Concomitant]
     Active Substance: CLINDAMYCIN
     Indication: Infection protozoal
     Dosage: 900 MILLIGRAM, QD, (900 MG/DAY) FOR 6 MONTHS
  104. CLINDAMYCIN [Concomitant]
     Active Substance: CLINDAMYCIN
     Dosage: 900 MILLIGRAM, QD, (900 MG/DAY) FOR 6 MONTHS
     Route: 065
  105. CLINDAMYCIN [Concomitant]
     Active Substance: CLINDAMYCIN
     Dosage: 900 MILLIGRAM, QD, (900 MG/DAY) FOR 6 MONTHS
     Route: 065
  106. CLINDAMYCIN [Concomitant]
     Active Substance: CLINDAMYCIN
     Dosage: 900 MILLIGRAM, QD, (900 MG/DAY) FOR 6 MONTHS
  107. CIDOFOVIR [Concomitant]
     Active Substance: CIDOFOVIR
     Indication: BK polyomavirus test positive
     Dosage: 5 MILLIGRAM/KILOGRAM, QD
  108. CIDOFOVIR [Concomitant]
     Active Substance: CIDOFOVIR
     Indication: Infection reactivation
     Dosage: 5 MILLIGRAM/KILOGRAM, QD
  109. CIDOFOVIR [Concomitant]
     Active Substance: CIDOFOVIR
     Dosage: 5 MILLIGRAM/KILOGRAM, QD
     Route: 042
  110. CIDOFOVIR [Concomitant]
     Active Substance: CIDOFOVIR
     Dosage: 5 MILLIGRAM/KILOGRAM, QD
     Route: 042
  111. CIDOFOVIR [Concomitant]
     Active Substance: CIDOFOVIR
     Dosage: 5 MILLIGRAM/KILOGRAM, QD
  112. CIDOFOVIR [Concomitant]
     Active Substance: CIDOFOVIR
     Dosage: 5 MILLIGRAM/KILOGRAM, QD
  113. CIDOFOVIR [Concomitant]
     Active Substance: CIDOFOVIR
     Dosage: 5 MILLIGRAM/KILOGRAM, QD
     Route: 043
  114. CIDOFOVIR [Concomitant]
     Active Substance: CIDOFOVIR
     Dosage: 5 MILLIGRAM/KILOGRAM, QD
     Route: 043
  115. VANCOMYCIN [Concomitant]
     Active Substance: VANCOMYCIN
     Indication: Staphylococcal bacteraemia
  116. VANCOMYCIN [Concomitant]
     Active Substance: VANCOMYCIN
     Route: 065
  117. VANCOMYCIN [Concomitant]
     Active Substance: VANCOMYCIN
     Route: 065
  118. VANCOMYCIN [Concomitant]
     Active Substance: VANCOMYCIN
  119. FOSCARNET [Concomitant]
     Active Substance: FOSCARNET
     Indication: Cytomegalovirus infection reactivation
     Dosage: 180 MILLIGRAM/KILOGRAM, QD
  120. FOSCARNET [Concomitant]
     Active Substance: FOSCARNET
     Dosage: 180 MILLIGRAM/KILOGRAM, QD
     Route: 065
  121. FOSCARNET [Concomitant]
     Active Substance: FOSCARNET
     Dosage: 180 MILLIGRAM/KILOGRAM, QD
     Route: 065
  122. FOSCARNET [Concomitant]
     Active Substance: FOSCARNET
     Dosage: 180 MILLIGRAM/KILOGRAM, QD
  123. RITUXIMAB [Concomitant]
     Active Substance: RITUXIMAB
     Indication: Epstein-Barr virus infection reactivation
  124. RITUXIMAB [Concomitant]
     Active Substance: RITUXIMAB
     Route: 065
  125. RITUXIMAB [Concomitant]
     Active Substance: RITUXIMAB
     Route: 065
  126. RITUXIMAB [Concomitant]
     Active Substance: RITUXIMAB

REACTIONS (26)
  - Cytomegalovirus infection reactivation [Recovered/Resolved]
  - Epstein-Barr virus infection reactivation [Recovered/Resolved]
  - Cytomegalovirus viraemia [Recovering/Resolving]
  - Cystitis haemorrhagic [Recovering/Resolving]
  - Cerebral toxoplasmosis [Recovered/Resolved]
  - Adenovirus reactivation [Recovered/Resolved]
  - Herpes simplex reactivation [Recovered/Resolved]
  - BK polyomavirus test positive [Recovered/Resolved]
  - Staphylococcal bacteraemia [Recovered/Resolved]
  - Infection reactivation [Recovered/Resolved]
  - BK virus infection [Recovered/Resolved]
  - Neurological symptom [Recovered/Resolved]
  - Viral haemorrhagic cystitis [Recovered/Resolved]
  - Headache [Recovered/Resolved]
  - Febrile neutropenia [Unknown]
  - Seizure [Recovered/Resolved]
  - Nausea [Recovered/Resolved]
  - Pyrexia [Recovered/Resolved]
  - Brain abscess [Recovered/Resolved]
  - Herpes simplex test positive [Recovered/Resolved]
  - Gastrointestinal viral infection [Recovered/Resolved]
  - Oral herpes [Recovered/Resolved]
  - Drug resistance [Unknown]
  - Product use in unapproved indication [Recovered/Resolved]
  - Off label use [Unknown]
  - Product use issue [Unknown]
